FAERS Safety Report 15785777 (Version 3)
Quarter: 2019Q1

REPORT INFORMATION
  Report Type: Spontaneous
  Country: US (occurrence: US)
  Receive Date: 20190103
  Receipt Date: 20190306
  Transmission Date: 20190417
  Serious: No
  Sender: FDA-Public Use
  Company Number: US-GLAXOSMITHKLINE-US2018GSK230910

PATIENT
  Sex: Female
  Weight: 63.49 kg

DRUGS (1)
  1. SUMATRIPTAN (SUMATRIPTAN SUCCINATE) SOLUTION FOR INJECTION IN PRE-FILL [Suspect]
     Active Substance: SUMATRIPTAN
     Indication: MIGRAINE
     Dosage: 0.5 ML, BID
     Route: 042
     Dates: start: 20181220, end: 20181220

REACTIONS (4)
  - Product dose omission [Unknown]
  - Underdose [Unknown]
  - Product complaint [Unknown]
  - Device defective [Unknown]
